FAERS Safety Report 10078750 (Version 1)
Quarter: 2014Q2

REPORT INFORMATION
  Report Type: Spontaneous
  Country: DE (occurrence: DE)
  Receive Date: 20140415
  Receipt Date: 20140415
  Transmission Date: 20141212
  Serious: Yes (Other)
  Sender: FDA-Public Use
  Company Number: DE-PFIZER INC-2014101527

PATIENT
  Age: 72 Year
  Sex: Male

DRUGS (5)
  1. INSPRA [Suspect]
     Dosage: UNK
     Dates: start: 2012
  2. RAMIPRIL [Suspect]
     Dosage: UNK
  3. HYDROCHLOROTHIAZID [Suspect]
     Dosage: UNK
  4. DIGITOXIN [Concomitant]
     Dosage: UNK
  5. METOPROLOL [Concomitant]
     Dosage: UNK

REACTIONS (2)
  - Cheyne-Stokes respiration [Unknown]
  - Sleep disorder [Unknown]
